FAERS Safety Report 5349477-8 (Version None)
Quarter: 2007Q2

REPORT INFORMATION
  Report Type: 
  Country: None (occurrence: None)
  Receive Date: 20070504
  Receipt Date: 20060731
  Transmission Date: 20071010
  Serious: Yes (Other)
  Sender: FDA-Public Use
  Company Number: PHEH2006US09767

PATIENT
  Age: 58 Year
  Sex: Male

DRUGS (3)
  1. DIOVAN HCT [Suspect]
     Indication: HYPERTENSION
     Dosage: 160MG VAL/25 MG HCT, QD
     Dates: start: 20051101, end: 20060101
  2. HYDROCHLOROTHIAZIDE [Suspect]
     Indication: HYPERTENSION
     Dosage: 25 MG, QD
     Dates: start: 20051101, end: 20060101
  3. NIFEDIPINE [Concomitant]

REACTIONS (1)
  - RENAL IMPAIRMENT [None]
